FAERS Safety Report 20253249 (Version 1)
Quarter: 2021Q4

REPORT INFORMATION
  Report Type: Spontaneous
  Country: US (occurrence: US)
  Receive Date: 20211230
  Receipt Date: 20211230
  Transmission Date: 20220303
  Serious: No
  Sender: FDA-Public Use
  Company Number: US-SA-SAC20211227001060

PATIENT
  Sex: Male

DRUGS (5)
  1. DUPIXENT [Suspect]
     Active Substance: DUPILUMAB
     Indication: Ill-defined disorder
     Dosage: 300 MG, QOW
     Route: 058
     Dates: start: 20210202
  2. TERBINAFINE [Concomitant]
     Active Substance: TERBINAFINE
     Dosage: UNK
     Route: 065
  3. TERBINAFINE [Concomitant]
     Active Substance: TERBINAFINE
  4. TERBINAFINE [Concomitant]
     Active Substance: TERBINAFINE
     Dosage: 250 MG
  5. TERBINAFINE [Concomitant]
     Active Substance: TERBINAFINE

REACTIONS (5)
  - Eczema [Unknown]
  - Rash [Unknown]
  - Discomfort [Unknown]
  - Condition aggravated [Unknown]
  - Condition aggravated [Unknown]
